FAERS Safety Report 4503779-3 (Version None)
Quarter: 2004Q4

REPORT INFORMATION
  Report Type: 
  Country: None (occurrence: None)
  Receive Date: 20041117
  Receipt Date: 20041103
  Transmission Date: 20050328
  Serious: Yes (Hospitalization)
  Sender: FDA-Public Use
  Company Number: FR-MERCK-0411FRA00012

PATIENT
  Age: 72 Year
  Sex: Male

DRUGS (6)
  1. ZOCOR [Suspect]
     Route: 048
     Dates: start: 19980101, end: 20040725
  2. ZOCOR [Suspect]
     Route: 048
     Dates: start: 20040801
  3. FUROSEMIDE [Suspect]
     Route: 048
     Dates: start: 19820101
  4. FOSINOPRIL SODIUM [Suspect]
     Route: 048
     Dates: start: 19920101
  5. FLUINDIONE [Concomitant]
     Route: 048
  6. ROSUVASTATIN CALCIUM [Concomitant]
     Route: 048
     Dates: start: 20040726, end: 20040701

REACTIONS (3)
  - ECZEMA [None]
  - FACE OEDEMA [None]
  - PHOTOSENSITIVITY REACTION [None]
